FAERS Safety Report 19465469 (Version 2)
Quarter: 2021Q4

REPORT INFORMATION
  Report Type: Spontaneous
  Country: US (occurrence: US)
  Receive Date: 20210624
  Receipt Date: 20211206
  Transmission Date: 20220303
  Serious: Yes (Other)
  Sender: FDA-Public Use
  Company Number: US-GILEAD-2021-0537440

PATIENT
  Age: 55 Year
  Sex: Female
  Weight: 94.331 kg

DRUGS (40)
  1. TRUVADA [Suspect]
     Active Substance: EMTRICITABINE\TENOFOVIR DISOPROXIL FUMARATE
     Indication: HIV infection
     Dosage: UNK
     Route: 048
     Dates: start: 2010
  2. TRUVADA [Suspect]
     Active Substance: EMTRICITABINE\TENOFOVIR DISOPROXIL FUMARATE
     Dosage: UNK
     Route: 065
     Dates: start: 200903, end: 201710
  3. GENVOYA [Concomitant]
     Active Substance: COBICISTAT\ELVITEGRAVIR\EMTRICITABINE\TENOFOVIR ALAFENAMIDE FUMARATE
  4. KALETRA [Concomitant]
     Active Substance: LOPINAVIR\RITONAVIR
  5. LEXIVA [Concomitant]
     Active Substance: FOSAMPRENAVIR CALCIUM
  6. NORVIR [Concomitant]
     Active Substance: RITONAVIR
  7. REYATAZ [Concomitant]
     Active Substance: ATAZANAVIR SULFATE
  8. ALBUTEROL [Concomitant]
     Active Substance: ALBUTEROL
  9. BUDEPRION [Concomitant]
     Active Substance: BUPROPION HYDROCHLORIDE
  10. BUTRANS [Concomitant]
     Active Substance: BUPRENORPHINE
  11. CELEBREX [Concomitant]
     Active Substance: CELECOXIB
  12. CLOBETASOL [Concomitant]
     Active Substance: CLOBETASOL
  13. CLOTRIMAZOLE [Concomitant]
     Active Substance: CLOTRIMAZOLE
  14. CYCLOBENZAPRINE [Concomitant]
     Active Substance: CYCLOBENZAPRINE
  15. DRONABINOL [Concomitant]
     Active Substance: DRONABINOL
  16. DULOXETINE [Concomitant]
     Active Substance: DULOXETINE
  17. FLUCONAZOLE [Concomitant]
     Active Substance: FLUCONAZOLE
  18. GABAPENTIN [Concomitant]
     Active Substance: GABAPENTIN
  19. ACETAMINOPHEN\HYDROCODONE [Concomitant]
     Active Substance: ACETAMINOPHEN\HYDROCODONE
  20. IBUPROFEN [Concomitant]
     Active Substance: IBUPROFEN
  21. KETOCONAZOLE [Concomitant]
     Active Substance: KETOCONAZOLE
  22. LINZESS [Concomitant]
     Active Substance: LINACLOTIDE
  23. LORATADINE [Concomitant]
     Active Substance: LORATADINE
  24. LYRICA [Concomitant]
     Active Substance: PREGABALIN
  25. MELOXICAM [Concomitant]
     Active Substance: MELOXICAM
  26. METRONIDAZOLE [Concomitant]
     Active Substance: METRONIDAZOLE
  27. OXYCODONE AND ACETAMINOPHEN [Concomitant]
     Active Substance: ACETAMINOPHEN\OXYCODONE HYDROCHLORIDE
  28. PANTOPRAZOLE [Concomitant]
     Active Substance: PANTOPRAZOLE
  29. PREDNISONE [Concomitant]
     Active Substance: PREDNISONE
  30. PREGABALIN [Concomitant]
     Active Substance: PREGABALIN
  31. PRAVASTATIN [Concomitant]
     Active Substance: PRAVASTATIN
  32. PROAIR HFA [Concomitant]
     Active Substance: ALBUTEROL SULFATE
  33. PROMETHAZINE [Concomitant]
     Active Substance: PROMETHAZINE HYDROCHLORIDE
  34. QUETIAPINE [Concomitant]
     Active Substance: QUETIAPINE
  35. SEROQUEL [Concomitant]
     Active Substance: QUETIAPINE FUMARATE
  36. TRAMADOL [Concomitant]
     Active Substance: TRAMADOL
  37. TRIFLUOPERAZINE [Concomitant]
     Active Substance: TRIFLUOPERAZINE HYDROCHLORIDE
  38. DIAZEPAM\ISOPROPAMIDE IODIDE [Concomitant]
     Active Substance: DIAZEPAM\ISOPROPAMIDE IODIDE
  39. ZOLPIDEM [Concomitant]
     Active Substance: ZOLPIDEM TARTRATE
  40. ZYPREXA [Concomitant]
     Active Substance: OLANZAPINE

REACTIONS (13)
  - Osteoporosis [Unknown]
  - Multiple fractures [Unknown]
  - Pain [Not Recovered/Not Resolved]
  - Emotional distress [Not Recovered/Not Resolved]
  - Anxiety [Not Recovered/Not Resolved]
  - Anhedonia [Not Recovered/Not Resolved]
  - Bone density decreased [Not Recovered/Not Resolved]
  - Bone pain [Not Recovered/Not Resolved]
  - Arthralgia [Not Recovered/Not Resolved]
  - Ankle fracture [Not Recovered/Not Resolved]
  - Foot fracture [Not Recovered/Not Resolved]
  - Gait disturbance [Not Recovered/Not Resolved]
  - Depression [Not Recovered/Not Resolved]

NARRATIVE: CASE EVENT DATE: 20200325
